FAERS Safety Report 9666551 (Version 1)
Quarter: 2013Q4

REPORT INFORMATION
  Report Type: Spontaneous
  Country: US (occurrence: US)
  Receive Date: 20131104
  Receipt Date: 20131104
  Transmission Date: 20140711
  Serious: No
  Sender: FDA-Public Use
  Company Number: US-BIOGENIDEC-2013BI086620

PATIENT
  Age: 35 Year
  Sex: Female

DRUGS (10)
  1. TECFIDERA [Suspect]
     Indication: MULTIPLE SCLEROSIS
     Route: 048
     Dates: start: 20130528, end: 20130603
  2. TECFIDERA [Suspect]
     Indication: MULTIPLE SCLEROSIS
     Route: 048
     Dates: start: 20130604
  3. AVONEX [Concomitant]
     Indication: MULTIPLE SCLEROSIS
     Route: 030
     Dates: start: 20080923
  4. COPAXONE [Concomitant]
  5. TYLENOL [Concomitant]
     Indication: PREMEDICATION
     Dates: start: 201003, end: 201304
  6. MYRBETRIQ [Concomitant]
     Indication: BLADDER DISORDER
     Route: 048
  7. OXYBUTYNIN [Concomitant]
     Indication: BLADDER DISORDER
     Route: 048
  8. ARICEPT [Concomitant]
     Indication: MEMORY IMPAIRMENT
     Dates: start: 201107, end: 201308
  9. NAMENDA [Concomitant]
     Indication: MEMORY IMPAIRMENT
     Dates: start: 201108, end: 201308
  10. PROVIGIL [Concomitant]
     Indication: MEMORY IMPAIRMENT
     Route: 048
     Dates: start: 201204

REACTIONS (3)
  - Nasopharyngitis [Not Recovered/Not Resolved]
  - Flushing [Recovered/Resolved]
  - Pruritus [Recovered/Resolved]
